FAERS Safety Report 7825782-8 (Version None)
Quarter: 2011Q4

REPORT INFORMATION
  Report Type: 
  Country: None (occurrence: None)
  Receive Date: 20111019
  Receipt Date: 20111012
  Transmission Date: 20120403
  Serious: Yes (Death, Hospitalization)
  Sender: FDA-Public Use
  Company Number: BE-CELGENEUS-013-21880-11092485

PATIENT
  Sex: Male
  Weight: 37 kg

DRUGS (5)
  1. REVLIMID [Suspect]
     Dosage: 15 MILLIGRAM
     Route: 048
     Dates: start: 20110727, end: 20110817
  2. DEXAMETHASONE [Suspect]
     Route: 048
     Dates: start: 20110727, end: 20110817
  3. EPOETIN [Concomitant]
     Indication: PROPHYLAXIS
     Route: 065
  4. DEXAMETHASONE [Suspect]
     Indication: MULTIPLE MYELOMA
     Dosage: 2.6667 MILLIGRAM
     Route: 048
     Dates: start: 20110621, end: 20110712
  5. REVLIMID [Suspect]
     Indication: MULTIPLE MYELOMA
     Dosage: 15 MILLIGRAM
     Route: 048
     Dates: start: 20110621, end: 20110712

REACTIONS (5)
  - CACHEXIA [None]
  - SEPSIS [None]
  - DECREASED APPETITE [None]
  - NERVOUS SYSTEM DISORDER [None]
  - DEHYDRATION [None]
